FAERS Safety Report 10572853 (Version 1)
Quarter: 2014Q4

REPORT INFORMATION
  Report Type: Spontaneous
  Country: BR (occurrence: None)
  Receive Date: 20141106
  Receipt Date: 20141106
  Transmission Date: 20150529
  Serious: Yes (Hospitalization)
  Sender: FDA-Public Use
  Company Number: IPC201410-000573

PATIENT
  Age: 8 Year

DRUGS (2)
  1. CLONAZEPAM (CLONAZEPAM) (CLONAZEPAM) [Suspect]
     Active Substance: CLONAZEPAM
  2. ATENOLOL (ATENOLOL) (ATENOLOL) [Suspect]
     Active Substance: ATENOLOL

REACTIONS (8)
  - Suicide attempt [None]
  - Dyslalia [None]
  - Fatigue [None]
  - Headache [None]
  - Toxicity to various agents [None]
  - Somnolence [None]
  - Confusional state [None]
  - Hypotonia [None]
